FAERS Safety Report 24176089 (Version 1)
Quarter: 2024Q3

REPORT INFORMATION
  Report Type: Report from Study
  Country: US (occurrence: US)
  Receive Date: 20240806
  Receipt Date: 20240806
  Transmission Date: 20241017
  Serious: Yes (Other)
  Sender: ABBVIE
  Company Number: US-ABBVIE-5843634

PATIENT
  Age: 62 Year
  Sex: Female
  Weight: 102 kg

DRUGS (2)
  1. HUMIRA [Suspect]
     Active Substance: ADALIMUMAB
     Indication: Rheumatoid arthritis
     Route: 058
     Dates: start: 201709, end: 2024
  2. HUMIRA [Suspect]
     Active Substance: ADALIMUMAB
     Route: 058

REACTIONS (8)
  - Sciatic nerve neuropathy [Unknown]
  - Nephrolithiasis [Unknown]
  - Parathyroidectomy [Unknown]
  - Hip arthroplasty [Unknown]
  - Wrist fracture [Unknown]
  - Trigger finger [Unknown]
  - Haemorrhoid operation [Unknown]
  - Neuroma [Unknown]

NARRATIVE: CASE EVENT DATE: 20190219
